FAERS Safety Report 7306690-8 (Version None)
Quarter: 2011Q1

REPORT INFORMATION
  Report Type: 
  Country: None (occurrence: None)
  Receive Date: 20110222
  Receipt Date: 20110211
  Transmission Date: 20110831
  Serious: Yes (Hospitalization)
  Sender: FDA-Public Use
  Company Number: PHHY2010DE23448

PATIENT
  Sex: Female
  Weight: 63 kg

DRUGS (2)
  1. CGS 20267 [Suspect]
     Indication: BREAST CANCER
     Dosage: 2.5 MG, QD
     Route: 048
     Dates: start: 20090505
  2. ENALAPRIL [Concomitant]
     Dosage: 20 MG
     Dates: start: 20000101

REACTIONS (2)
  - CHOLELITHIASIS [None]
  - BILE DUCT STONE [None]
